FAERS Safety Report 17827618 (Version 5)
Quarter: 2024Q1

REPORT INFORMATION
  Report Type: Spontaneous
  Country: DE (occurrence: None)
  Receive Date: 20200527
  Receipt Date: 20240320
  Transmission Date: 20240410
  Serious: Yes (Other)
  Sender: FDA-Public Use
  Company Number: 2020SE68067

PATIENT
  Age: 71 Year
  Sex: Male
  Weight: 107 kg

DRUGS (4)
  1. ROFLUMILAST [Suspect]
     Active Substance: ROFLUMILAST
     Indication: Chronic obstructive pulmonary disease
     Dosage: 1-0-0
     Route: 048
     Dates: start: 201701, end: 201901
  2. FLUTICASONE FUROATE\VILANTEROL TRIFENATATE [Concomitant]
     Active Substance: FLUTICASONE FUROATE\VILANTEROL TRIFENATATE
     Indication: Chronic obstructive pulmonary disease
  3. CARBAMAZEPINE [Concomitant]
     Active Substance: CARBAMAZEPINE
     Indication: Epilepsy
  4. SPIRIVA [Concomitant]
     Active Substance: TIOTROPIUM BROMIDE MONOHYDRATE
     Indication: Chronic obstructive pulmonary disease

REACTIONS (8)
  - Rectal cancer [Recovered/Resolved]
  - Intestinal haemorrhage [Unknown]
  - Pulmonary hypertension [Not Recovered/Not Resolved]
  - Cerebrovascular accident [Unknown]
  - Right ventricular failure [Not Recovered/Not Resolved]
  - Carotid artery occlusion [Recovered/Resolved]
  - Arterial occlusive disease [Recovered/Resolved]
  - Left ventricular failure [Not Recovered/Not Resolved]

NARRATIVE: CASE EVENT DATE: 20190101
